FAERS Safety Report 6968122-9 (Version None)
Quarter: 2010Q3

REPORT INFORMATION
  Report Type: 
  Country: None (occurrence: None)
  Receive Date: 20100907
  Receipt Date: 20100828
  Transmission Date: 20110219
  Serious: Yes (Hospitalization)
  Sender: FDA-Public Use
  Company Number: B0549175A

PATIENT
  Age: 31 Year
  Sex: Male
  Weight: 54 kg

DRUGS (1)
  1. FLOLAN [Suspect]
     Indication: PULMONARY HYPERTENSION
     Route: 042

REACTIONS (4)
  - ASCITES [None]
  - DYSPNOEA [None]
  - PAIN IN EXTREMITY [None]
  - WEIGHT INCREASED [None]
